FAERS Safety Report 7905825-3 (Version None)
Quarter: 2011Q4

REPORT INFORMATION
  Report Type: 
  Country: None (occurrence: None)
  Receive Date: 20111108
  Receipt Date: 20111026
  Transmission Date: 20120403
  Serious: Yes (Life-Threatening, Other)
  Sender: FDA-Public Use
  Company Number: 2011AT000419

PATIENT
  Sex: Male

DRUGS (2)
  1. ALPROSTADIL [Suspect]
     Indication: TRANSPOSITION OF THE GREAT VESSELS
     Dosage: 20 UG
  2. PROSTAGLANDINS [Concomitant]

REACTIONS (3)
  - DEEP VEIN THROMBOSIS [None]
  - OFF LABEL USE [None]
  - OXYGEN SATURATION DECREASED [None]
